FAERS Safety Report 4478434-9 (Version None)
Quarter: 2004Q4

REPORT INFORMATION
  Report Type: 
  Country: None (occurrence: None)
  Receive Date: 20041013
  Receipt Date: 20041007
  Transmission Date: 20050328
  Serious: Yes (Other)
  Sender: FDA-Public Use
  Company Number: GBWYE100011OCT04

PATIENT
  Age: 52 Year
  Sex: Female

DRUGS (2)
  1. EFFEXOR [Suspect]
     Indication: DEPRESSION
     Dosage: 1 TABLET 1X PER 1 DAY
     Route: 048
     Dates: start: 20040601, end: 20040929
  2. LORAZEPAM [Concomitant]

REACTIONS (3)
  - DRUG WITHDRAWAL SYNDROME [None]
  - MYALGIA [None]
  - RESTLESSNESS [None]
